FAERS Safety Report 5106022-X (Version None)
Quarter: 2006Q3

REPORT INFORMATION
  Report Type: 
  Country: None (occurrence: None)
  Receive Date: 20060915
  Receipt Date: 20060906
  Transmission Date: 20061208
  Serious: Yes (Death)
  Sender: FDA-Public Use
  Company Number: LT-ABBOTT-06P-287-0343296-00

PATIENT
  Sex: Male
  Weight: 70 kg

DRUGS (2)
  1. KALETRA [Suspect]
     Indication: DRUG USE FOR UNKNOWN INDICATION
     Dates: start: 20051222, end: 20060711
  2. LAMIVUDINE + ZIDOVUDINE [Concomitant]
     Indication: HIV INFECTION
     Dates: start: 20051222, end: 20060711

REACTIONS (2)
  - ASPHYXIA [None]
  - COMPLETED SUICIDE [None]
